FAERS Safety Report 7190164-1 (Version None)
Quarter: 2010Q4

REPORT INFORMATION
  Report Type: 
  Country: None (occurrence: None)
  Receive Date: 20101223
  Receipt Date: 20100805
  Transmission Date: 20110411
  Serious: No
  Sender: FDA-Public Use
  Company Number: US-MYLANLABS-2010S1014362

PATIENT
  Age: 55 Year
  Sex: Female
  Weight: 62.14 kg

DRUGS (2)
  1. CITALOPRAM HYDROBROMIDE [Suspect]
     Indication: DEPRESSION
     Route: 048
     Dates: start: 20100731
  2. IBUPROFEN [Concomitant]
     Indication: ARTHRITIS

REACTIONS (1)
  - PALPITATIONS [None]
